FAERS Safety Report 13754053 (Version 2)
Quarter: 2017Q3

REPORT INFORMATION
  Report Type: Spontaneous
  Country: BR (occurrence: BR)
  Receive Date: 20170713
  Receipt Date: 20170726
  Transmission Date: 20171127
  Serious: Yes (Hospitalization, Other)
  Sender: FDA-Public Use
  Company Number: BR-ASTRAZENECA-2017SE71392

PATIENT
  Sex: Female

DRUGS (2)
  1. ATACAND [Suspect]
     Active Substance: CANDESARTAN CILEXETIL
     Indication: BLOOD PRESSURE ABNORMAL
     Dosage: 16 MG, UNK
     Route: 048
  2. ATACAND COMB [Suspect]
     Active Substance: CANDESARTAN CILEXETIL\FELODIPINE
     Indication: BLOOD PRESSURE ABNORMAL
     Dosage: 16/2.5MG, EVERY MORNING
     Route: 048

REACTIONS (5)
  - Insurance issue [Unknown]
  - Blood pressure increased [Not Recovered/Not Resolved]
  - Product substitution issue [Unknown]
  - Blood pressure inadequately controlled [Recovered/Resolved]
  - Back pain [Recovered/Resolved]
